FAERS Safety Report 8960738 (Version 1)
Quarter: 2012Q4

REPORT INFORMATION
  Report Type: 
  Country: US (occurrence: US)
  Receive Date: 20121212
  Receipt Date: 20121212
  Transmission Date: 20130627
  Serious: No
  Sender: FDA-Public Use
  Company Number: US-PFIZER INC-2012312010

PATIENT
  Sex: Female

DRUGS (4)
  1. EFFEXOR [Suspect]
     Indication: DEPRESSION WORSENED
     Dosage: 37.5 mg, UNK
  2. PREDNISONE [Suspect]
     Indication: FACIAL SWELLING
     Dosage: UNK
  3. PREDNISONE [Suspect]
     Indication: SWELLING ARM
  4. PREDNISONE [Suspect]
     Indication: SWELLING OF LEGS

REACTIONS (3)
  - Depression [Unknown]
  - Hyperhidrosis [Unknown]
  - Cold sweat [Unknown]
